FAERS Safety Report 9973281 (Version 1)
Quarter: 2014Q1

REPORT INFORMATION
  Report Type: Report from Study
  Country: US (occurrence: US)
  Receive Date: 20140306
  Receipt Date: 20140306
  Transmission Date: 20141002
  Serious: No
  Sender: FDA-Public Use
  Company Number: US-ABBVIE-13P-163-1154409-00

PATIENT
  Age: 80 Year
  Sex: Male

DRUGS (2)
  1. HUMIRA [Suspect]
     Indication: CROHN^S DISEASE
     Route: 058
     Dates: start: 20130702, end: 201309
  2. HUMIRA [Suspect]
     Route: 058
     Dates: start: 201309, end: 20131030

REACTIONS (3)
  - Rash [Recovered/Resolved]
  - Crohn^s disease [Unknown]
  - Rash [Unknown]
